FAERS Safety Report 14255894 (Version 5)
Quarter: 2020Q1

REPORT INFORMATION
  Report Type: Report from Study
  Country: CA (occurrence: CA)
  Receive Date: 20171206
  Receipt Date: 20200205
  Transmission Date: 20200409
  Serious: Yes (Life-Threatening, Other)
  Sender: FDA-Public Use
  Company Number: CA-JNJFOC-20171203370

PATIENT
  Sex: Male
  Weight: 68.8 kg

DRUGS (6)
  1. REMICADE [Suspect]
     Active Substance: INFLIXIMAB
     Indication: CROHN^S DISEASE
  2. REMICADE [Suspect]
     Active Substance: INFLIXIMAB
     Indication: ANKYLOSING SPONDYLITIS
     Dosage: 5 MG/KG
     Route: 042
     Dates: start: 2001
  3. CABOZANTINIB [Suspect]
     Active Substance: CABOZANTINIB
     Route: 048
  4. CABOZANTINIB [Suspect]
     Active Substance: CABOZANTINIB
     Indication: METASTASES TO LYMPH NODES
     Route: 048
     Dates: end: 20181004
  5. CABOZANTINIB [Suspect]
     Active Substance: CABOZANTINIB
     Route: 048
  6. CABOZANTINIB [Suspect]
     Active Substance: CABOZANTINIB
     Route: 048

REACTIONS (5)
  - Fatigue [Unknown]
  - Diarrhoea [Unknown]
  - Stoma site reaction [Recovering/Resolving]
  - Blood pressure increased [Recovering/Resolving]
  - Metastases to lymph nodes [Not Recovered/Not Resolved]

NARRATIVE: CASE EVENT DATE: 2018
